FAERS Safety Report 9442969 (Version 1)
Quarter: 2013Q3

REPORT INFORMATION
  Report Type: Spontaneous
  Country: US (occurrence: None)
  Receive Date: 20130805
  Receipt Date: 20130805
  Transmission Date: 20140515
  Serious: Yes (Other)
  Sender: FDA-Public Use
  Company Number: None

PATIENT
  Age: 64 Year
  Sex: Female
  Weight: 61.24 kg

DRUGS (2)
  1. CARVEDILOL [Suspect]
     Indication: HYPERTENSION
     Dates: start: 20130717, end: 20130720
  2. CARVEDILOL [Suspect]
     Indication: CARDIAC DISORDER
     Dates: start: 20130717, end: 20130720

REACTIONS (3)
  - Pruritus [None]
  - Fatigue [None]
  - Product substitution issue [None]
